FAERS Safety Report 11361147 (Version 2)
Quarter: 2016Q3

REPORT INFORMATION
  Report Type: Spontaneous
  Country: US (occurrence: US)
  Receive Date: 20150810
  Receipt Date: 20160824
  Transmission Date: 20161109
  Serious: No
  Sender: FDA-Public Use
  Company Number: US-BAYER-2015-396461

PATIENT
  Age: 76 Year
  Sex: Female

DRUGS (2)
  1. TAMOXIFEN [Concomitant]
     Active Substance: TAMOXIFEN
  2. MIRALAX [Suspect]
     Active Substance: POLYETHYLENE GLYCOL 3350
     Indication: CONSTIPATION
     Dosage: 1 DOSE, QD
     Route: 048
     Dates: start: 2013, end: 20160819

REACTIONS (4)
  - Flatulence [Recovered/Resolved]
  - Haemorrhoids [None]
  - Muscle disorder [None]
  - Drug ineffective [None]

NARRATIVE: CASE EVENT DATE: 2013
